FAERS Safety Report 26171170 (Version 1)
Quarter: 2025Q4

REPORT INFORMATION
  Report Type: Spontaneous
  Country: EU (occurrence: EU)
  Receive Date: 20251217
  Receipt Date: 20251217
  Transmission Date: 20260117
  Serious: Yes (Hospitalization)
  Sender: GUERBET
  Company Number: None

PATIENT
  Age: 73 Year
  Sex: Male
  Weight: 92 kg

DRUGS (1)
  1. LIPIODOL [Suspect]
     Active Substance: ETHIODIZED OIL
     Indication: Product used for unknown indication
     Route: 042
     Dates: start: 20251009, end: 20251009

REACTIONS (2)
  - Respiratory distress [Recovered/Resolved]
  - Cyanosis [Recovered/Resolved]

NARRATIVE: CASE EVENT DATE: 20251009
